FAERS Safety Report 9295507 (Version 1)
Quarter: 2013Q2

REPORT INFORMATION
  Report Type: Spontaneous
  Country: NL (occurrence: NL)
  Receive Date: 20130517
  Receipt Date: 20130517
  Transmission Date: 20140414
  Serious: Yes (Hospitalization)
  Sender: FDA-Public Use
  Company Number: NL-ASTRAZENECA-2013SE31957

PATIENT
  Age: 66 Year
  Sex: Female
  Weight: 72 kg

DRUGS (4)
  1. OMEPRAZOL [Suspect]
     Indication: GASTROOESOPHAGEAL REFLUX DISEASE
     Route: 048
     Dates: start: 20130212, end: 20130420
  2. THYRAX DUOTAB [Concomitant]
     Route: 048
  3. PILOCARPINE OOGDR [Concomitant]
     Dosage: 1.25 MG/ML
     Route: 047
  4. DURATEARS OOGDRUPPELS FLACON [Concomitant]
     Dosage: 15 ML
     Route: 047

REACTIONS (1)
  - Cutaneous lupus erythematosus [Recovering/Resolving]
